FAERS Safety Report 16366273 (Version 1)
Quarter: 2019Q2

REPORT INFORMATION
  Report Type: Spontaneous
  Country: US (occurrence: US)
  Receive Date: 20190529
  Receipt Date: 20190529
  Transmission Date: 20190711
  Serious: Yes (Life-Threatening, Hospitalization, Other)
  Sender: FDA-Public Use
  Company Number: US-JNJFOC-20190528164

PATIENT
  Age: 8 Month
  Sex: Male

DRUGS (1)
  1. FENTANYL. [Suspect]
     Active Substance: FENTANYL
     Indication: PRODUCT USED FOR UNKNOWN INDICATION
     Dosage: A 25 +#956;G/H FENTANYL PATCH
     Route: 062

REACTIONS (2)
  - Brain oedema [Recovered/Resolved]
  - Accidental exposure to product by child [Recovered/Resolved]
